FAERS Safety Report 19355375 (Version 1)
Quarter: 2021Q2

REPORT INFORMATION
  Report Type: Spontaneous
  Country: US (occurrence: US)
  Receive Date: 20210601
  Receipt Date: 20210601
  Transmission Date: 20210717
  Serious: No
  Sender: FDA-Public Use
  Company Number: None

PATIENT
  Age: 32 Year
  Sex: Female

DRUGS (1)
  1. CAPECITABINE 500MG NOVADOZ PHARMACEUTICALS [Suspect]
     Active Substance: CAPECITABINE
     Indication: BREAST CANCER
     Dosage: 1500MG BID X 14 DAYS ORAL
     Route: 048
     Dates: start: 20210130

REACTIONS (2)
  - Fall [None]
  - Renal vein thrombosis [None]

NARRATIVE: CASE EVENT DATE: 20210311
